FAERS Safety Report 24136172 (Version 1)
Quarter: 2024Q3

REPORT INFORMATION
  Report Type: Spontaneous
  Country: IT (occurrence: IT)
  Receive Date: 20240725
  Receipt Date: 20240725
  Transmission Date: 20241016
  Serious: Yes (Other)
  Sender: PFIZER
  Company Number: None

PATIENT
  Age: 81 Year
  Sex: Male
  Weight: 74 kg

DRUGS (6)
  1. LINEZOLID [Suspect]
     Active Substance: LINEZOLID
     Indication: Sepsis
     Dosage: 600 MG, 2X/DAY
     Route: 048
     Dates: start: 20240714, end: 20240716
  2. ASPIRIN [Concomitant]
     Active Substance: ASPIRIN
     Dosage: 1 DF, DAILY (AFTER LUNCH)
  3. RAMIPRIL [Concomitant]
     Active Substance: RAMIPRIL
     Dosage: 1 DF, DAILY (IN THE EVENING)
  4. SIMVASTATIN [Concomitant]
     Active Substance: SIMVASTATIN
     Dosage: 1 DF, DAILY (IN THE EVENING)
  5. TENORMIN [Concomitant]
     Active Substance: ATENOLOL
     Dosage: 1 DF, DAILY (IN THE MORNING)
  6. ALFUZOSIN [Concomitant]
     Active Substance: ALFUZOSIN
     Dosage: 1 DF, DAILY (IN THE EVENING)

REACTIONS (3)
  - Dermatitis bullous [Unknown]
  - Sopor [Unknown]
  - Pyrexia [Unknown]

NARRATIVE: CASE EVENT DATE: 20240714
